FAERS Safety Report 6851134-3 (Version None)
Quarter: 2010Q3

REPORT INFORMATION
  Report Type: 
  Country: None (occurrence: None)
  Receive Date: 20100716
  Receipt Date: 20071028
  Transmission Date: 20110219
  Serious: No
  Sender: FDA-Public Use
  Company Number: US-PFIZER INC-2007091648

PATIENT
  Sex: Female
  Weight: 61.4 kg

DRUGS (8)
  1. CHANTIX [Suspect]
     Indication: SMOKING CESSATION THERAPY
     Dates: start: 20071001, end: 20071001
  2. PLAVIX [Concomitant]
  3. ACETYLSALICYLIC ACID [Concomitant]
  4. MOBIC [Concomitant]
  5. CALCIUM [Concomitant]
  6. METOPROLOL [Concomitant]
  7. ALTACE [Concomitant]
  8. LIPITOR [Concomitant]
     Dates: start: 20070101

REACTIONS (2)
  - CHEST PAIN [None]
  - STRESS [None]
